FAERS Safety Report 8224486-X (Version None)
Quarter: 2012Q1

REPORT INFORMATION
  Report Type: 
  Country: None (occurrence: None)
  Receive Date: 20120321
  Receipt Date: 20120319
  Transmission Date: 20120608
  Serious: Yes (Death, Hospitalization)
  Sender: FDA-Public Use
  Company Number: PHHY2012CA007494

PATIENT
  Sex: Male

DRUGS (3)
  1. SANDOSTATIN LAR [Suspect]
     Dosage: 30 MG, QMO
     Route: 030
     Dates: start: 20120125, end: 20120223
  2. AFINITOR [Suspect]
     Indication: PANCREATIC NEUROENDOCRINE TUMOUR METASTATIC
     Dosage: 05 MG EVERY DAY
     Route: 048
     Dates: start: 20120123
  3. SANDOSTATIN LAR [Suspect]
     Indication: PANCREATIC NEUROENDOCRINE TUMOUR METASTATIC
     Route: 030
     Dates: start: 20111223

REACTIONS (5)
  - VOMITING [None]
  - APHAGIA [None]
  - PAIN [None]
  - NAUSEA [None]
  - DEATH [None]
